FAERS Safety Report 17128782 (Version 1)
Quarter: 2019Q4

REPORT INFORMATION
  Report Type: Spontaneous
  Country: US (occurrence: US)
  Receive Date: 20191209
  Receipt Date: 20191209
  Transmission Date: 20200122
  Serious: No
  Sender: FDA-Public Use
  Company Number: US-ELI_LILLY_AND_COMPANY-US201912001171

PATIENT
  Age: 74 Year
  Sex: Male

DRUGS (3)
  1. TRULICITY [Suspect]
     Active Substance: DULAGLUTIDE
     Indication: TYPE 2 DIABETES MELLITUS
     Dosage: 1.5 MG, WEEKLY (1/W)
     Route: 058
  2. BASAGLAR [Suspect]
     Active Substance: INSULIN GLARGINE
     Indication: TYPE 2 DIABETES MELLITUS
     Dosage: 37 U, DAILY
     Route: 058
     Dates: start: 2017
  3. BASAGLAR [Suspect]
     Active Substance: INSULIN GLARGINE
     Dosage: 37 U, DAILY
     Route: 058

REACTIONS (4)
  - Injection site pain [Unknown]
  - Diarrhoea [Recovered/Resolved]
  - Injection site haemorrhage [Recovered/Resolved]
  - Injection site bruising [Unknown]

NARRATIVE: CASE EVENT DATE: 20191123
